FAERS Safety Report 17356453 (Version 1)
Quarter: 2020Q1

REPORT INFORMATION
  Report Type: Spontaneous
  Country: DK (occurrence: DK)
  Receive Date: 20200131
  Receipt Date: 20200131
  Transmission Date: 20200409
  Serious: Yes (Hospitalization)
  Sender: FDA-Public Use
  Company Number: DK-ABBVIE-20K-044-3253037-00

PATIENT
  Age: 53 Year
  Sex: Female

DRUGS (7)
  1. FORMOTEROL FUMARATE [Concomitant]
     Active Substance: FORMOTEROL FUMARATE
     Indication: ASTHMA
     Dosage: STYRKE: 12 MIKROGRAM/DOSIS.
     Route: 055
     Dates: start: 20191218
  2. BETAMETHASONE VALERATE. [Concomitant]
     Active Substance: BETAMETHASONE VALERATE
     Indication: PSORIASIS
     Dosage: STYRKE: 1+20 MG/G.
     Route: 003
     Dates: start: 20200108, end: 20200114
  3. HUMIRA [Suspect]
     Active Substance: ADALIMUMAB
     Indication: PSORIASIS
     Route: 058
     Dates: start: 2010, end: 201808
  4. TALTZ [Suspect]
     Active Substance: IXEKIZUMAB
     Indication: PSORIASIS
     Route: 065
     Dates: start: 201903
  5. BETNOVATE [Concomitant]
     Active Substance: BETAMETHASONE
     Indication: PSORIASIS
     Dosage: STYRKE: 1 + 30 MG/G.
     Route: 003
     Dates: start: 20200108
  6. HUMIRA [Suspect]
     Active Substance: ADALIMUMAB
     Route: 058
  7. FUSIDINSYRE/BETAMETHASONVALERAT [Concomitant]
     Indication: PSORIASIS
     Dosage: STYRKE: 1+20 MG/G.
     Route: 003
     Dates: start: 20200108, end: 20200114

REACTIONS (1)
  - Tendon rupture [Recovered/Resolved]

NARRATIVE: CASE EVENT DATE: 20200110
